FAERS Safety Report 7913377-7 (Version None)
Quarter: 2011Q4

REPORT INFORMATION
  Report Type: 
  Country: None (occurrence: None)
  Receive Date: 20111115
  Receipt Date: 20111103
  Transmission Date: 20120403
  Serious: Yes (Other)
  Sender: FDA-Public Use
  Company Number: PL-AMGEN-POLSP2011058264

PATIENT
  Age: 6 Year

DRUGS (2)
  1. METHOTREXATE SODIUM [Concomitant]
     Dosage: UNK
  2. ENBREL [Suspect]
     Indication: PRODUCT USED FOR UNKNOWN INDICATION
     Dosage: 9 MG, 2X/WEEK
     Dates: start: 20110801

REACTIONS (1)
  - LOSS OF CONSCIOUSNESS [None]
